FAERS Safety Report 6429479-0 (Version None)
Quarter: 2009Q4

REPORT INFORMATION
  Report Type: 
  Country: None (occurrence: None)
  Receive Date: 20091105
  Receipt Date: 20090803
  Transmission Date: 20100525
  Serious: No
  Sender: FDA-Public Use
  Company Number: US-ABBOTT-09P-163-0589283-00

PATIENT
  Sex: Male
  Weight: 68.1 kg

DRUGS (2)
  1. KALETRA [Suspect]
     Indication: HIV INFECTION
     Route: 048
     Dates: start: 20040101, end: 20090701
  2. TRUVADA [Concomitant]
     Indication: HIV INFECTION
     Dosage: DOSE UNKNOWN

REACTIONS (1)
  - DIARRHOEA [None]
